FAERS Safety Report 5092556-3 (Version None)
Quarter: 2006Q3

REPORT INFORMATION
  Report Type: 
  Country: None (occurrence: None)
  Receive Date: 20060828
  Receipt Date: 20060815
  Transmission Date: 20061208
  Serious: Yes (Death, Life-Threatening, Hospitalization)
  Sender: FDA-Public Use
  Company Number: 2006099619

PATIENT
  Sex: Female

DRUGS (1)
  1. SUTENT [Suspect]
     Indication: BRAIN NEOPLASM

REACTIONS (4)
  - CEREBRAL HAEMORRHAGE [None]
  - EPISTAXIS [None]
  - HAEMATOTOXICITY [None]
  - THROMBOCYTOPENIA [None]
